FAERS Safety Report 7584380-4 (Version None)
Quarter: 2011Q2

REPORT INFORMATION
  Report Type: 
  Country: None (occurrence: None)
  Receive Date: 20110630
  Receipt Date: 20110620
  Transmission Date: 20111010
  Serious: Yes (Hospitalization)
  Sender: FDA-Public Use
  Company Number: JP-PFIZER INC-2011145450

PATIENT
  Age: 72 Year
  Sex: Female
  Weight: 50.7 kg

DRUGS (13)
  1. AMINO ACIDS/ELECTROLYTES/GLUCOSE/VITAMINS [Concomitant]
     Dosage: UNK
     Dates: start: 20110111, end: 20110111
  2. NEUROVITAN [Concomitant]
     Dosage: UNK
     Dates: end: 20110128
  3. SUBVITAN [Concomitant]
     Dosage: UNK
     Dates: start: 20110111, end: 20110117
  4. ATORVASTATIN CALCIUM [Suspect]
     Indication: HYPERCHOLESTEROLAEMIA
     Dosage: 10 MG, 1X/DAY
     Route: 048
     Dates: start: 20100921
  5. NAFAMOSTAT MESILATE [Concomitant]
     Dosage: UNK
     Dates: start: 20110114, end: 20110116
  6. FOLIC ACID [Concomitant]
     Dosage: UNK
     Dates: end: 20110128
  7. ASCORBIC ACID [Concomitant]
     Dosage: UNK
     Dates: start: 20110111, end: 20110117
  8. CEFOPERAZONE SODIUM [Concomitant]
     Dosage: UNK
     Dates: start: 20110111, end: 20110116
  9. AMLODIPINE [Concomitant]
     Dosage: UNK
  10. URSO 250 [Concomitant]
     Dosage: UNK
  11. GLUCOSE [Concomitant]
     Dosage: UNK
     Dates: start: 20110114, end: 20110116
  12. FLAVINE ADENINE DINUCLEOTIDE [Concomitant]
     Dosage: UNK
     Dates: start: 20110111, end: 20110117
  13. TREPIBUTONE [Concomitant]
     Dosage: UNK

REACTIONS (3)
  - HEPATIC FUNCTION ABNORMAL [None]
  - PANCREATITIS [None]
  - BILE DUCT STONE [None]
